FAERS Safety Report 23735453 (Version 1)
Quarter: 2024Q2

REPORT INFORMATION
  Report Type: Spontaneous
  Country: US (occurrence: US)
  Receive Date: 20240412
  Receipt Date: 20240412
  Transmission Date: 20240716
  Serious: No
  Sender: FDA-Public Use
  Company Number: US-BRISTOL-MYERS SQUIBB COMPANY-2024-057095

PATIENT
  Age: 74 Year
  Sex: Male

DRUGS (1)
  1. ORENCIA [Suspect]
     Active Substance: ABATACEPT
     Indication: Rheumatoid arthritis
     Route: 058
     Dates: start: 202401

REACTIONS (7)
  - Palpitations [Unknown]
  - Joint swelling [Unknown]
  - Peripheral swelling [Unknown]
  - Stomatitis [Unknown]
  - Nodule [Unknown]
  - Hypotension [Unknown]
  - Dyspnoea [Unknown]
